FAERS Safety Report 12725784 (Version 1)
Quarter: 2016Q3

REPORT INFORMATION
  Report Type: Spontaneous
  Country: US (occurrence: US)
  Receive Date: 20160908
  Receipt Date: 20160908
  Transmission Date: 20161109
  Serious: No
  Sender: FDA-Public Use
  Company Number: US-VIVUS-2015V1000364

PATIENT
  Sex: Female

DRUGS (1)
  1. QSYMIA [Suspect]
     Active Substance: PHENTERMINE HYDROCHLORIDE\TOPIRAMATE
     Indication: PRODUCT USED FOR UNKNOWN INDICATION
     Route: 048
     Dates: start: 2015

REACTIONS (9)
  - Rash [Unknown]
  - Feeling abnormal [Unknown]
  - Dysgeusia [Unknown]
  - Blood glucose decreased [Unknown]
  - Blood cholesterol decreased [Unknown]
  - Peripheral coldness [Unknown]
  - Ageusia [Unknown]
  - Hypoaesthesia [Unknown]
  - Secretion discharge [Unknown]
